FAERS Safety Report 12265671 (Version 1)
Quarter: 2016Q2

REPORT INFORMATION
  Report Type: Spontaneous
  Country: DE (occurrence: DE)
  Receive Date: 20160413
  Receipt Date: 20160413
  Transmission Date: 20160815
  Serious: Yes (Death, Hospitalization)
  Sender: FDA-Public Use
  Company Number: DE-DSJP-DSE-2016-112969

PATIENT

DRUGS (3)
  1. LIXIANA [Suspect]
     Active Substance: EDOXABAN TOSILATE MONOHYDRATE
     Indication: ATRIAL FIBRILLATION
     Dosage: 30 MG, QD
     Route: 048
     Dates: start: 20151124
  2. CANDECOR COMP [Concomitant]
     Indication: HYPERTENSION
     Dosage: 8 MG/12,5 MG, QD
     Route: 048
     Dates: start: 20140212
  3. LEVETIRACETAM. [Concomitant]
     Active Substance: LEVETIRACETAM
     Indication: EPILEPSY
     Dosage: 500 MG, QD
     Route: 048
     Dates: start: 20150818

REACTIONS (2)
  - Femoral neck fracture [Unknown]
  - Aspiration [Fatal]
